FAERS Safety Report 13486665 (Version 1)
Quarter: 2017Q2

REPORT INFORMATION
  Report Type: Spontaneous
  Country: US (occurrence: US)
  Receive Date: 20170426
  Receipt Date: 20170426
  Transmission Date: 20170830
  Serious: No
  Sender: FDA-Public Use
  Company Number: US-TARO-2016TAR00867

PATIENT
  Age: 53 Year
  Sex: Female
  Weight: 61.22 kg

DRUGS (6)
  1. GABAPENTIN. [Concomitant]
     Active Substance: GABAPENTIN
  2. VALSARTAN. [Concomitant]
     Active Substance: VALSARTAN
  3. ETODOLAC TABLETS 500 MG [Suspect]
     Active Substance: ETODOLAC
     Indication: ARTHRITIS
     Dosage: 500 MG, 3X/DAY
     Route: 048
  4. REBIF [Concomitant]
     Active Substance: INTERFERON BETA-1A
  5. TIZANIDINE. [Concomitant]
     Active Substance: TIZANIDINE
  6. SERTRALINE [Concomitant]
     Active Substance: SERTRALINE HYDROCHLORIDE
     Dosage: 100 MG, 2X/DAY

REACTIONS (1)
  - Drug ineffective [Not Recovered/Not Resolved]

NARRATIVE: CASE EVENT DATE: 201601
